FAERS Safety Report 18624932 (Version 2)
Quarter: 2020Q4

REPORT INFORMATION
  Report Type: Spontaneous
  Country: US (occurrence: US)
  Receive Date: 20201216
  Receipt Date: 20201228
  Transmission Date: 20210114
  Serious: No
  Sender: FDA-Public Use
  Company Number: US-PFIZER INC-2020473578

PATIENT
  Age: 40 Year
  Sex: Female
  Weight: 84.35 kg

DRUGS (2)
  1. MEDROXYPROGESTERONE ACETATE. [Suspect]
     Active Substance: MEDROXYPROGESTERONE ACETATE
     Indication: DYSMENORRHOEA
     Dosage: 150 MG/ML (EVERY 90 DAYS 150MG/ML)
     Dates: start: 201911
  2. MEDROXYPROGESTERONE ACETATE. [Suspect]
     Active Substance: MEDROXYPROGESTERONE ACETATE
     Indication: PAIN

REACTIONS (5)
  - Device breakage [Unknown]
  - Device leakage [Unknown]
  - Drug effective for unapproved indication [Unknown]
  - Drug dose omission by device [Unknown]
  - Off label use [Unknown]

NARRATIVE: CASE EVENT DATE: 201911
